FAERS Safety Report 23584560 (Version 1)
Quarter: 2024Q1

REPORT INFORMATION
  Report Type: Spontaneous
  Country: HU (occurrence: HU)
  Receive Date: 20240301
  Receipt Date: 20240301
  Transmission Date: 20240410
  Serious: Yes (Other)
  Sender: FDA-Public Use
  Company Number: HU-JUBILANT PHARMA LTD-2024HU000231

PATIENT
  Sex: Male
  Weight: 98 kg

DRUGS (14)
  1. VALSARTAN [Suspect]
     Active Substance: VALSARTAN
     Indication: Hypertension
     Dosage: 80 MILLIGRAM DAILY; IN THE EVENING
     Route: 048
  2. VALSARTAN [Suspect]
     Active Substance: VALSARTAN
     Dosage: IN THE MORNING AND IN THE EVENING
     Route: 048
  3. VALSARTAN [Suspect]
     Active Substance: VALSARTAN
     Dosage: 160 MG, QD (IN THE EVENING)
  4. CAPTOPRIL [Suspect]
     Active Substance: CAPTOPRIL
     Indication: Blood pressure increased
     Dosage: UNK UNK, UNK
  5. CARVEDILOL [Suspect]
     Active Substance: CARVEDILOL
     Indication: Hypertension
     Dosage: 12.5 MG, EVERY 12 HOUR
  6. CARVEDILOL [Suspect]
     Active Substance: CARVEDILOL
     Dosage: 12.5 MG CARVEDILOL IN THE MORNING, 18.75 MG CARVEDILOL AND 80 MG VALSARTAN IN THE EVENING
     Route: 048
  7. CARVEDILOL [Suspect]
     Active Substance: CARVEDILOL
     Dosage: 12.5 MG, BID (IN THE MORNING AND EVENING)/
     Route: 048
  8. CARVEDILOL [Suspect]
     Active Substance: CARVEDILOL
     Dosage: 37.5 MILLIGRAM DAILY;
     Route: 048
  9. NEBIVOLOL [Suspect]
     Active Substance: NEBIVOLOL
     Indication: Hypertension
     Dosage: 5 MG, QD (IN THE EVENING)
  10. PROPRANOLOL [Suspect]
     Active Substance: PROPRANOLOL HYDROCHLORIDE
     Indication: Hypertension
     Dosage: 120 MILLIGRAM DAILY;
     Route: 048
  11. PROPRANOLOL [Suspect]
     Active Substance: PROPRANOLOL HYDROCHLORIDE
     Indication: Graves^ disease
     Dosage: 80 MILLIGRAM DAILY; 40 MG TWICE OR 3 TIMES DAILY
     Route: 048
  12. PROPRANOLOL [Suspect]
     Active Substance: PROPRANOLOL HYDROCHLORIDE
     Indication: Blood pressure increased
     Dosage: 20 MG, UNK
     Route: 048
  13. PROPRANOLOL [Suspect]
     Active Substance: PROPRANOLOL HYDROCHLORIDE
     Indication: Graves^ disease
     Dosage: 40 MILLIGRAM DAILY; 20 YEARS AT A DOSE OF 20 MG TWICE DAILY
     Route: 048
  14. METHIMAZOLE [Concomitant]
     Active Substance: METHIMAZOLE
     Indication: Essential tremor
     Dosage: DOSE OF HALF A TABLET, FOLLOWED BY A QUARTER OF A TABLET
     Dates: start: 2000, end: 2006

REACTIONS (14)
  - Erectile dysfunction [Recovered/Resolved]
  - Nocturnal hypertension [Recovered/Resolved]
  - Sexual dysfunction [Recovered/Resolved]
  - Lethargy [Recovering/Resolving]
  - Persistent depressive disorder [Unknown]
  - Hepatic steatosis [Recovering/Resolving]
  - Diastolic dysfunction [Unknown]
  - Hypersensitivity [Recovering/Resolving]
  - Nephropathy [Recovering/Resolving]
  - Left ventricular hypertrophy [Recovering/Resolving]
  - Heart rate decreased [Recovered/Resolved]
  - Heart rate increased [Recovered/Resolved]
  - Rash [Recovered/Resolved]
  - Hepatic steatosis [Unknown]
